FAERS Safety Report 9576577 (Version 1)
Quarter: 2013Q4

REPORT INFORMATION
  Report Type: Spontaneous
  Country: US (occurrence: US)
  Receive Date: 20131001
  Receipt Date: 20131001
  Transmission Date: 20140711
  Serious: No
  Sender: FDA-Public Use
  Company Number: US-AMGEN-USASP2013003806

PATIENT
  Sex: Male
  Weight: 95.24 kg

DRUGS (2)
  1. ENBREL [Suspect]
     Indication: PSORIATIC ARTHROPATHY
     Dosage: 50 MG, QWK
     Route: 058
  2. AMLODIPIN                          /00972401/ [Concomitant]
     Dosage: 10 MG, UNK

REACTIONS (4)
  - Hypoaesthesia [Unknown]
  - Local swelling [Unknown]
  - Myalgia [Unknown]
  - Rash [Unknown]
